FAERS Safety Report 9001103 (Version 1)
Quarter: 2013Q1

REPORT INFORMATION
  Report Type: Spontaneous
  Country: US (occurrence: US)
  Receive Date: 20130107
  Receipt Date: 20130107
  Transmission Date: 20140127
  Serious: Yes (Hospitalization)
  Sender: FDA-Public Use
  Company Number: US-BAYER-2013-000536

PATIENT
  Age: 50 Year
  Sex: Female
  Weight: 93.42 kg

DRUGS (14)
  1. GIANVI [Suspect]
  2. YAZ [Suspect]
     Indication: MENORRHAGIA
  3. PROZAC [Concomitant]
  4. CLARITIN [Concomitant]
  5. SELENIUM [Concomitant]
  6. FISH OIL [Concomitant]
  7. ZYRTEC [Concomitant]
  8. CALTRATE WITH VITAMIN D [Concomitant]
  9. VITAMIN C [Concomitant]
  10. FINACEA [Concomitant]
     Dosage: 15 UNK, UNK
  11. LOCOID [Concomitant]
     Dosage: 0.1 %, UNK
  12. IBUPROFEN [Concomitant]
  13. TORADOL [Concomitant]
     Route: 042
  14. DEPO-PROVERA [Concomitant]

REACTIONS (1)
  - Pulmonary embolism [None]
